FAERS Safety Report 11780095 (Version 1)
Quarter: 2015Q4

REPORT INFORMATION
  Report Type: Spontaneous
  Country: US (occurrence: US)
  Receive Date: 20151126
  Receipt Date: 20151126
  Transmission Date: 20160304
  Serious: No
  Sender: FDA-Public Use
  Company Number: US-JNJFOC-20151006071

PATIENT
  Age: 10 Year
  Sex: Male
  Weight: 34.02 kg

DRUGS (3)
  1. INSULIN [Concomitant]
     Active Substance: INSULIN NOS
     Indication: TYPE 1 DIABETES MELLITUS
     Route: 065
  2. AMOXICILLIN. [Concomitant]
     Active Substance: AMOXICILLIN
     Indication: PHARYNGITIS STREPTOCOCCAL
     Dosage: 2 DAYS
     Route: 065
     Dates: start: 20151006
  3. CHILDRENS TYLENOL [Suspect]
     Active Substance: ACETAMINOPHEN
     Indication: PHARYNGITIS STREPTOCOCCAL
     Dosage: 3 TEASPOONS, 4-5 TIMES, AT LEAST 4 HOURS APART
     Route: 048
     Dates: start: 20151006, end: 20151007

REACTIONS (1)
  - Blood glucose increased [Recovered/Resolved]
